FAERS Safety Report 13425712 (Version 1)
Quarter: 2017Q2

REPORT INFORMATION
  Report Type: Spontaneous
  Country: US (occurrence: US)
  Receive Date: 20170411
  Receipt Date: 20170411
  Transmission Date: 20170830
  Serious: No
  Sender: FDA-Public Use
  Company Number: US-JNJFOC-20170304188

PATIENT
  Sex: Female
  Weight: 55.34 kg

DRUGS (2)
  1. DOXIL [Suspect]
     Active Substance: DOXORUBICIN HYDROCHLORIDE
     Indication: OVARIAN CANCER
     Route: 042
     Dates: start: 201608
  2. DOXIL [Suspect]
     Active Substance: DOXORUBICIN HYDROCHLORIDE
     Indication: OVARIAN CANCER
     Dosage: AT A REDUCED DOSE
     Route: 042
     Dates: start: 20170221

REACTIONS (2)
  - Lymph nodes scan abnormal [Unknown]
  - Rash [Not Recovered/Not Resolved]
